FAERS Safety Report 18216316 (Version 1)
Quarter: 2020Q3

REPORT INFORMATION
  Report Type: Spontaneous
  Country: GB (occurrence: GB)
  Receive Date: 20200901
  Receipt Date: 20200901
  Transmission Date: 20201103
  Serious: Yes (Hospitalization, Other)
  Sender: FDA-Public Use
  Company Number: GB-ALKEM LABORATORIES LIMITED-GB-ALKEM-2019-11225

PATIENT
  Age: 54 Year
  Sex: Female

DRUGS (8)
  1. PROPRANOLOL [Concomitant]
     Active Substance: PROPRANOLOL HYDROCHLORIDE
     Indication: PRODUCT USED FOR UNKNOWN INDICATION
     Dosage: UNK , (X 3 DAILY), (EVERY)
     Route: 065
  2. TETRABENAZINE. [Concomitant]
     Active Substance: TETRABENAZINE
     Indication: PRODUCT USED FOR UNKNOWN INDICATION
     Dosage: UNK, X 3 DAILY, (EVERY)
     Route: 065
  3. ZOPICLONE [Concomitant]
     Active Substance: ZOPICLONE
     Indication: SLEEP DISORDER
     Dosage: UNK, (X 1 DAILY), (EVERY)
     Route: 065
  4. OLANZAPINE. [Concomitant]
     Active Substance: OLANZAPINE
     Indication: PSYCHOTIC DISORDER
     Dosage: UNK, (X 1 DAILY), (EVERY)
     Route: 065
  5. CLONAZEPAM. [Concomitant]
     Active Substance: CLONAZEPAM
     Dosage: UNK, (X 3/6 DAILY), (EVERY)
     Route: 065
  6. QUETIAPINE FUMARATE. [Suspect]
     Active Substance: QUETIAPINE FUMARATE
     Indication: PSYCHOTIC DISORDER
     Dosage: UNKNOWN, (EVERY)
     Route: 048
  7. CLONAZEPAM. [Concomitant]
     Active Substance: CLONAZEPAM
     Indication: SEDATIVE THERAPY
     Dosage: UNK,(INCREASED DOSE).(EVERY)
     Route: 065
  8. RISPERIDONE. [Concomitant]
     Active Substance: RISPERIDONE
     Indication: PRODUCT USED FOR UNKNOWN INDICATION
     Dosage: UNK, (EVERY)
     Route: 065

REACTIONS (15)
  - Parkinsonism [Unknown]
  - Separation anxiety disorder [Unknown]
  - Impaired quality of life [Unknown]
  - Pain [Unknown]
  - Epilepsy [Unknown]
  - Panic attack [Unknown]
  - Anxiety [Unknown]
  - Depression [Unknown]
  - Huntington^s disease [Unknown]
  - Teeth brittle [Unknown]
  - Tardive dyskinesia [Not Recovered/Not Resolved]
  - Oromandibular dystonia [Not Recovered/Not Resolved]
  - Suicidal ideation [Unknown]
  - Disturbance in attention [Unknown]
  - Emotional distress [Unknown]
